FAERS Safety Report 10363848 (Version 1)
Quarter: 2014Q3

REPORT INFORMATION
  Report Type: Spontaneous
  Country: US (occurrence: US)
  Receive Date: 20140805
  Receipt Date: 20140805
  Transmission Date: 20150326
  Serious: Yes (Hospitalization)
  Sender: FDA-Public Use
  Company Number: US-B.I. PHARMACEUTICALS,INC./RIDGEFIELD-2014-BI-35168BP

PATIENT
  Sex: Female

DRUGS (13)
  1. METOPROLOD [Concomitant]
     Route: 065
  2. PRADAXA [Suspect]
     Active Substance: DABIGATRAN ETEXILATE MESYLATE
     Indication: PRODUCT USED FOR UNKNOWN INDICATION
     Route: 065
  3. HYDROCODON [Concomitant]
     Active Substance: HYDROCODONE
     Route: 065
  4. FUROSEMIDE. [Concomitant]
     Active Substance: FUROSEMIDE
     Route: 065
  5. LEVOTHYROXINE [Concomitant]
     Active Substance: LEVOTHYROXINE
     Route: 065
  6. PRAVASTATIN [Concomitant]
     Active Substance: PRAVASTATIN\PRAVASTATIN SODIUM
     Route: 065
  7. DILTIAZEM [Concomitant]
     Active Substance: DILTIAZEM
     Route: 065
  8. KLOR-CON [Concomitant]
     Active Substance: POTASSIUM CHLORIDE
     Route: 065
  9. TRAZODIONE [Concomitant]
     Route: 065
  10. HUMALOG [Concomitant]
     Active Substance: INSULIN LISPRO
     Dosage: 8 UNITS
     Route: 065
  11. CUMINDAN [Concomitant]
     Route: 065
  12. LANDUS [Concomitant]
     Dosage: 40 UNITS
     Route: 065
  13. OMEPRAXOLE [Concomitant]
     Route: 065

REACTIONS (1)
  - Atrial fibrillation [Unknown]
